FAERS Safety Report 22189467 (Version 3)
Quarter: 2023Q2

REPORT INFORMATION
  Report Type: Report from Study
  Country: JP (occurrence: JP)
  Receive Date: 20230410
  Receipt Date: 20230601
  Transmission Date: 20230722
  Serious: Yes (Hospitalization, Other)
  Sender: FDA-Public Use
  Company Number: JP-CELLTRION INC.-2023JP006765

PATIENT

DRUGS (34)
  1. INVESTIGATIONAL BIOSIMILARS [Suspect]
     Active Substance: INVESTIGATIONAL BIOSIMILARS
     Indication: HER2 positive gastric cancer
     Dosage: 400 MILLIGRAM, EVERY ADMINISTRATION
     Route: 041
     Dates: start: 20220527, end: 20220527
  2. INVESTIGATIONAL BIOSIMILARS [Suspect]
     Active Substance: INVESTIGATIONAL BIOSIMILARS
     Dosage: 300 MILLIGRAM, EVERY ADMINISTRATION (QD)
     Route: 041
     Dates: start: 20220620, end: 20220620
  3. INVESTIGATIONAL BIOSIMILARS [Suspect]
     Active Substance: INVESTIGATIONAL BIOSIMILARS
     Dosage: 300 MILLIGRAM, EVERY ADMINISTRATION (QD)
     Route: 041
     Dates: start: 20220711, end: 20220711
  4. INVESTIGATIONAL BIOSIMILARS [Suspect]
     Active Substance: INVESTIGATIONAL BIOSIMILARS
     Dosage: 300 MILLIGRAM, EVERY ADMINISTRATION (QD)
     Route: 041
     Dates: start: 20220801, end: 20220801
  5. INVESTIGATIONAL BIOSIMILARS [Suspect]
     Active Substance: INVESTIGATIONAL BIOSIMILARS
     Dosage: 300 MILLIGRAM, EVERY ADMINISTRATION (QD)
     Route: 041
     Dates: start: 20220824, end: 20220824
  6. INVESTIGATIONAL BIOSIMILARS [Suspect]
     Active Substance: INVESTIGATIONAL BIOSIMILARS
     Dosage: 300 MILLIGRAM, EVERY ADMINISTRATION (QD)
     Route: 041
     Dates: start: 20220914, end: 20220914
  7. INVESTIGATIONAL BIOSIMILARS [Suspect]
     Active Substance: INVESTIGATIONAL BIOSIMILARS
     Dosage: 300 MILLIGRAM, EVERY ADMINISTRATION (QD)
     Route: 041
     Dates: start: 20221005, end: 20221005
  8. OXALIPLATIN [Suspect]
     Active Substance: OXALIPLATIN
     Indication: HER2 positive gastric cancer
     Dosage: 130 MILLIGRAM, QD
     Route: 041
     Dates: start: 20220527, end: 20220527
  9. OXALIPLATIN [Suspect]
     Active Substance: OXALIPLATIN
     Dosage: 130 MILLIGRAM, QD
     Route: 041
     Dates: start: 20220620, end: 20220620
  10. OXALIPLATIN [Suspect]
     Active Substance: OXALIPLATIN
     Dosage: 130 MILLIGRAM, QD
     Route: 041
     Dates: start: 20220711, end: 20220711
  11. OXALIPLATIN [Suspect]
     Active Substance: OXALIPLATIN
     Dosage: 130 MILLIGRAM, QD
     Route: 041
     Dates: start: 20220801, end: 20220801
  12. OXALIPLATIN [Suspect]
     Active Substance: OXALIPLATIN
     Dosage: 130 MILLIGRAM, QD
     Route: 041
     Dates: start: 20220824, end: 20220824
  13. OXALIPLATIN [Suspect]
     Active Substance: OXALIPLATIN
     Dosage: 130 MILLIGRAM, QD
     Route: 041
     Dates: start: 20220914, end: 20220914
  14. OXALIPLATIN [Suspect]
     Active Substance: OXALIPLATIN
     Dosage: 130 MILLIGRAM, QD
     Route: 041
     Dates: start: 20221005, end: 20221005
  15. FLUOROURACIL [Suspect]
     Active Substance: FLUOROURACIL
     Indication: HER2 positive gastric cancer
     Dosage: 3700 MILLIGRAM/BODY/46 HR
     Route: 041
     Dates: start: 20220527, end: 20220529
  16. FLUOROURACIL [Suspect]
     Active Substance: FLUOROURACIL
     Dosage: 600 MILLIGRAM, QD
     Route: 040
     Dates: start: 20220527, end: 20220529
  17. FLUOROURACIL [Suspect]
     Active Substance: FLUOROURACIL
     Dosage: 3700 MILLIGRAM/BODY/46 HR
     Route: 041
     Dates: start: 20220620, end: 20220622
  18. FLUOROURACIL [Suspect]
     Active Substance: FLUOROURACIL
     Dosage: 600 MILLIGRAM, QD
     Route: 040
     Dates: start: 20220620, end: 20220622
  19. FLUOROURACIL [Suspect]
     Active Substance: FLUOROURACIL
     Dosage: 3700 MILLIGRAM/BODY/46 HR
     Route: 041
     Dates: start: 20220711, end: 20220713
  20. FLUOROURACIL [Suspect]
     Active Substance: FLUOROURACIL
     Dosage: 600 MILLIGRAM, QD
     Route: 040
     Dates: start: 20220711, end: 20220713
  21. FLUOROURACIL [Suspect]
     Active Substance: FLUOROURACIL
     Dosage: 3700 MILLIGRAM/BODY/46 HR
     Route: 041
     Dates: start: 20220801, end: 20220803
  22. FLUOROURACIL [Suspect]
     Active Substance: FLUOROURACIL
     Dosage: 600 MILLIGRAM, QD
     Route: 040
     Dates: start: 20220801, end: 20220803
  23. FLUOROURACIL [Suspect]
     Active Substance: FLUOROURACIL
     Dosage: 3700 MILLIGRAM/BODY/46 HR
     Route: 041
     Dates: start: 20220824, end: 20220826
  24. FLUOROURACIL [Suspect]
     Active Substance: FLUOROURACIL
     Dosage: 600 MILLIGRAM, QD
     Route: 040
     Dates: start: 20220824, end: 20220826
  25. FLUOROURACIL [Suspect]
     Active Substance: FLUOROURACIL
     Dosage: 3700 MILLIGRAM/BODY/46 HR
     Route: 041
     Dates: start: 20220914, end: 20220916
  26. FLUOROURACIL [Suspect]
     Active Substance: FLUOROURACIL
     Dosage: 600 MILLIGRAM, QD
     Route: 040
     Dates: start: 20220914, end: 20220916
  27. FLUOROURACIL [Suspect]
     Active Substance: FLUOROURACIL
     Dosage: 3700 MILLIGRAM/BODY/46 HR
     Route: 041
     Dates: start: 20221005, end: 20221007
  28. FLUOROURACIL [Suspect]
     Active Substance: FLUOROURACIL
     Dosage: 600 MILLIGRAM, QD
     Route: 040
     Dates: start: 20221005, end: 20221007
  29. TELMISARTAN [Concomitant]
     Active Substance: TELMISARTAN
     Indication: Hypertension
     Dosage: UNK
     Dates: end: 20220710
  30. AMLODIPINE [Concomitant]
     Active Substance: AMLODIPINE BESYLATE
     Indication: Hypertension
     Dosage: UNK
     Dates: end: 20220710
  31. TRICHLORMETHIAZIDE [Concomitant]
     Active Substance: TRICHLORMETHIAZIDE
     Indication: Hypertension
     Dosage: UNK
     Dates: end: 20220710
  32. FULCALIQ [Concomitant]
     Active Substance: AMINO ACIDS\CARBOHYDRATES\ELECTROLYTES NOS\VITAMINS
     Indication: HER2 positive gastric cancer
     Dosage: UNK
     Dates: start: 20220603, end: 20221102
  33. SULFAMETHOXAZOLE\TRIMETHOPRIM [Concomitant]
     Active Substance: SULFAMETHOXAZOLE\TRIMETHOPRIM
     Indication: Prophylaxis
     Dosage: UNK
     Dates: start: 20221109
  34. VONOPRAZAN FUMARATE [Concomitant]
     Active Substance: VONOPRAZAN FUMARATE
     Indication: Prophylaxis against gastrointestinal ulcer
     Dosage: UNK
     Dates: start: 20221103

REACTIONS (5)
  - Interstitial lung disease [Recovering/Resolving]
  - Anaemia [Not Recovered/Not Resolved]
  - Neutrophil count decreased [Recovered/Resolved]
  - White blood cell count decreased [Recovered/Resolved]
  - Underdose [Unknown]

NARRATIVE: CASE EVENT DATE: 20220527
